FAERS Safety Report 5852708-9 (Version None)
Quarter: 2008Q3

REPORT INFORMATION
  Report Type: 
  Country: None (occurrence: None)
  Receive Date: 20080821
  Receipt Date: 20080808
  Transmission Date: 20090109
  Serious: Yes (Hospitalization)
  Sender: FDA-Public Use
  Company Number: CH-GENENTECH-259659

PATIENT
  Sex: Male

DRUGS (2)
  1. BEVACIZUMAB [Suspect]
     Indication: METASTATIC MALIGNANT MELANOMA
     Dosage: 800 MG, Q2W
     Route: 042
     Dates: start: 20080131
  2. TEMODAL [Suspect]
     Indication: MALIGNANT MELANOMA
     Dosage: 300 MG, UNK
     Route: 048
     Dates: start: 20080131

REACTIONS (4)
  - DIABETES MELLITUS [None]
  - GASTROENTERITIS SALMONELLA [None]
  - HYPERTENSION [None]
  - PYREXIA [None]
